FAERS Safety Report 25984729 (Version 3)
Quarter: 2025Q4

REPORT INFORMATION
  Report Type: Spontaneous
  Country: CA (occurrence: CA)
  Receive Date: 20251031
  Receipt Date: 20251203
  Transmission Date: 20260117
  Serious: Yes (Other)
  Sender: PFIZER
  Company Number: CA-TAKEDA-2025TUS094027

PATIENT
  Age: 35 Year
  Sex: Male

DRUGS (6)
  1. PANTOPRAZOLE [Suspect]
     Active Substance: PANTOPRAZOLE
     Dosage: 40 MG, 2X/DAY
     Route: 065
  2. INFLIXIMAB [Suspect]
     Active Substance: INFLIXIMAB
     Indication: Crohn^s disease
     Dosage: 5 MG/KG, ONCE EVERY 2 MONTHS
     Route: 042
     Dates: start: 20250424
  3. INFLIXIMAB [Suspect]
     Active Substance: INFLIXIMAB
     Indication: Crohn^s disease
     Dosage: 300 MG, ONCE EVERY 2 MONTHS
  4. IMURAN [Suspect]
     Active Substance: AZATHIOPRINE
     Indication: Crohn^s disease
     Dosage: 125 MG, 1X/DAY
     Route: 048
     Dates: start: 202110
  5. INFLECTRA [Suspect]
     Active Substance: INFLIXIMAB-DYYB
     Indication: Crohn^s disease
     Dosage: 300 MG
     Route: 042
  6. INFLECTRA [Suspect]
     Active Substance: INFLIXIMAB-DYYB
     Dosage: 5 MG/KG, CYCLIC, Q8WEEKS
     Route: 042
     Dates: start: 20220214

REACTIONS (10)
  - Alanine aminotransferase increased [Unknown]
  - Decreased appetite [Unknown]
  - Fistula of small intestine [Unknown]
  - Gastric mucosal lesion [Unknown]
  - Gastritis [Unknown]
  - Gastrooesophageal reflux disease [Unknown]
  - Ileal stenosis [Unknown]
  - Night sweats [Unknown]
  - Oesophagitis [Unknown]
  - Sleep disorder [Unknown]

NARRATIVE: CASE EVENT DATE: 20230401
